FAERS Safety Report 14113543 (Version 1)
Quarter: 2017Q4

REPORT INFORMATION
  Report Type: Spontaneous
  Country: US (occurrence: US)
  Receive Date: 20171022
  Receipt Date: 20171022
  Transmission Date: 20180321
  Serious: Yes (Hospitalization, Disabling, Other)
  Sender: FDA-Public Use
  Company Number: None

PATIENT
  Age: 52 Year
  Sex: Male
  Weight: 94.5 kg

DRUGS (2)
  1. YERVOY [Suspect]
     Active Substance: IPILIMUMAB
     Indication: CLINICAL TRIAL PARTICIPANT
     Dates: start: 20170401, end: 20170601
  2. STEROIDS [Concomitant]
     Active Substance: UNSPECIFIED INGREDIENT

REACTIONS (5)
  - Pain [None]
  - Muscular weakness [None]
  - Impaired work ability [None]
  - Motor dysfunction [None]
  - Gait disturbance [None]

NARRATIVE: CASE EVENT DATE: 20170501
